FAERS Safety Report 10190025 (Version 4)
Quarter: 2017Q3

REPORT INFORMATION
  Report Type: Report from Study
  Country: US (occurrence: US)
  Receive Date: 20140522
  Receipt Date: 20170908
  Transmission Date: 20171127
  Serious: Yes (Other)
  Sender: FDA-Public Use
  Company Number: PHEH2014US010134

PATIENT
  Sex: Female

DRUGS (1)
  1. SANDOSTATIN LAR DEPOT [Suspect]
     Active Substance: OCTREOTIDE ACETATE
     Indication: CARCINOID TUMOUR PULMONARY
     Dosage: 30 MG, UNK
     Route: 065

REACTIONS (11)
  - Fall [Unknown]
  - Intervertebral disc protrusion [Unknown]
  - Back pain [Unknown]
  - Abdominal pain [Unknown]
  - Neoplasm [Unknown]
  - Pelvic pain [Unknown]
  - Lung disorder [Unknown]
  - Cough [Unknown]
  - Dyspnoea [Unknown]
  - Pain [Unknown]
  - Haemoptysis [Unknown]
